FAERS Safety Report 17288300 (Version 1)
Quarter: 2020Q1

REPORT INFORMATION
  Report Type: Spontaneous
  Country: GB (occurrence: GB)
  Receive Date: 20200120
  Receipt Date: 20200120
  Transmission Date: 20200409
  Serious: Yes (Other)
  Sender: FDA-Public Use
  Company Number: GB-TEVA-2020-GB-1169971

PATIENT
  Age: 76 Year
  Sex: Male
  Weight: 112 kg

DRUGS (4)
  1. PERINDOPRIL ARGININE [Concomitant]
     Active Substance: PERINDOPRIL ARGININE
  2. INDAPAMIDE. [Concomitant]
     Active Substance: INDAPAMIDE
  3. ATORVASTATIN CALCIUM. [Suspect]
     Active Substance: ATORVASTATIN CALCIUM
     Indication: HYPERCHOLESTEROLAEMIA
     Dosage: 20 MG
     Route: 048
     Dates: start: 20191115, end: 20191219
  4. AMLODIPINE MESILATE [Concomitant]
     Active Substance: AMLODIPINE MESYLATE

REACTIONS (2)
  - Rash [Recovering/Resolving]
  - Erythema multiforme [Recovering/Resolving]

NARRATIVE: CASE EVENT DATE: 20191204
